FAERS Safety Report 25877607 (Version 1)
Quarter: 2025Q4

REPORT INFORMATION
  Report Type: Spontaneous
  Country: US (occurrence: None)
  Receive Date: 20251002
  Receipt Date: 20251002
  Transmission Date: 20260118
  Serious: Yes (Hospitalization)
  Sender: FDA-CTU
  Company Number: None

PATIENT
  Sex: Female

DRUGS (1)
  1. KISQALI [Suspect]
     Active Substance: RIBOCICLIB SUCCINATE
     Indication: Product used for unknown indication
     Dosage: 400 MG/ML  DAILY ORAL
     Route: 048
     Dates: start: 20250304

REACTIONS (3)
  - Oxygen saturation decreased [None]
  - Therapy interrupted [None]
  - Breast disorder [None]
